FAERS Safety Report 4695701-4 (Version None)
Quarter: 2005Q2

REPORT INFORMATION
  Report Type: 
  Country: None (occurrence: None)
  Receive Date: 20050621
  Receipt Date: 20050607
  Transmission Date: 20051028
  Serious: Yes (Hospitalization)
  Sender: FDA-Public Use
  Company Number: NO-JNJFOC-20050601975

PATIENT
  Sex: Female

DRUGS (10)
  1. REMICADE [Suspect]
     Indication: RHEUMATOID ARTHRITIS
     Route: 042
  2. METHOTREXATE [Concomitant]
     Indication: RHEUMATOID ARTHRITIS
  3. VALDECOXIB [Concomitant]
     Indication: RHEUMATOID ARTHRITIS
     Route: 049
  4. NAPROXEN [Concomitant]
     Indication: RHEUMATOID ARTHRITIS
     Route: 049
  5. METOPROLOL [Concomitant]
     Indication: HYPERTENSION
     Route: 049
  6. LOSARTAN [Concomitant]
     Indication: HYPERTENSION
  7. SIMVASTATIN [Concomitant]
     Indication: PROPHYLAXIS
  8. FOLIC ACID [Concomitant]
     Route: 049
  9. ASPIRIN [Concomitant]
     Indication: PROPHYLAXIS
     Route: 049
  10. CODEINE/PARACETAMOL [Concomitant]
     Dosage: 1 DOSE IN THE EVENING

REACTIONS (2)
  - AMNESIA [None]
  - VISUAL DISTURBANCE [None]
